FAERS Safety Report 23160008 (Version 1)
Quarter: 2023Q4

REPORT INFORMATION
  Report Type: Report from Study
  Country: US (occurrence: US)
  Receive Date: 20231108
  Receipt Date: 20231108
  Transmission Date: 20240110
  Serious: No
  Sender: FDA-Public Use
  Company Number: US-INCYTE CORPORATION-2023IN010611

PATIENT

DRUGS (5)
  1. JAKAFI [Suspect]
     Active Substance: RUXOLITINIB
     Indication: Polycythaemia vera
     Dosage: 5 MILLIGRAM, BID
     Route: 048
  2. JAKAFI [Suspect]
     Active Substance: RUXOLITINIB
     Dosage: 1 DOSAGE FORM, 3X/WEEK (1 TABLET, 3 TIMES A WEEK ON MONDAY, WEDNESDAY, AND FRIDAY)
     Route: 048
  3. JAKAFI [Suspect]
     Active Substance: RUXOLITINIB
     Dosage: 5 MILLIGRAM, QD (AT BEDTIME)
     Route: 048
  4. LEVOTHYROXINE [Concomitant]
     Active Substance: LEVOTHYROXINE
     Indication: Product used for unknown indication
     Route: 065
  5. ASPIRIN [Concomitant]
     Active Substance: ASPIRIN
     Indication: Product used for unknown indication
     Route: 065

REACTIONS (16)
  - Pain [Unknown]
  - Gastrointestinal disorder [Unknown]
  - Insomnia [Unknown]
  - Middle insomnia [Unknown]
  - Night sweats [Unknown]
  - Asthenia [Unknown]
  - Fear of falling [Unknown]
  - Neck pain [Unknown]
  - Rash pruritic [Unknown]
  - Bladder spasm [Unknown]
  - Pollakiuria [Unknown]
  - Condition aggravated [Unknown]
  - Anxiety [Unknown]
  - Feeling abnormal [Unknown]
  - Headache [Unknown]
  - Dizziness [Unknown]
